FAERS Safety Report 12725498 (Version 4)
Quarter: 2017Q1

REPORT INFORMATION
  Report Type: Report from Study
  Country: NL (occurrence: NL)
  Receive Date: 20160908
  Receipt Date: 20170322
  Transmission Date: 20170428
  Serious: Yes (Hospitalization, Other)
  Sender: FDA-Public Use
  Company Number: NL-AMGEN-NLDSL2016117099

PATIENT
  Age: 77 Year
  Sex: Male

DRUGS (3)
  1. XGEVA [Suspect]
     Active Substance: DENOSUMAB
     Dosage: UNK
     Route: 058
  2. XGEVA [Suspect]
     Active Substance: DENOSUMAB
     Dosage: UNK
     Route: 058
  3. XGEVA [Suspect]
     Active Substance: DENOSUMAB
     Indication: PROPHYLAXIS
     Dosage: 120 MG (1.70ML), Q4WK
     Route: 058

REACTIONS (5)
  - Urethral discharge [Unknown]
  - Pulmonary embolism [Recovering/Resolving]
  - Pathogen resistance [Unknown]
  - Pyrexia [Recovered/Resolved]
  - Febrile convulsion [Recovering/Resolving]

NARRATIVE: CASE EVENT DATE: 20160802
